FAERS Safety Report 7951103-6 (Version None)
Quarter: 2011Q4

REPORT INFORMATION
  Report Type: 
  Country: None (occurrence: None)
  Receive Date: 20111201
  Receipt Date: 20111118
  Transmission Date: 20120403
  Serious: Yes (Other)
  Sender: FDA-Public Use
  Company Number: US-ELI_LILLY_AND_COMPANY-US201111006417

PATIENT
  Age: 26 Year
  Sex: Female

DRUGS (2)
  1. ZYPREXA [Suspect]
     Indication: DEPRESSION
     Dosage: 5 MG, QD
     Route: 065
     Dates: start: 20110501
  2. LUVOX [Concomitant]

REACTIONS (7)
  - BENIGN INTRACRANIAL HYPERTENSION [None]
  - VISUAL IMPAIRMENT [None]
  - WEIGHT INCREASED [None]
  - OFF LABEL USE [None]
  - INCREASED APPETITE [None]
  - FATIGUE [None]
  - TINNITUS [None]
